FAERS Safety Report 19715653 (Version 1)
Quarter: 2021Q3

REPORT INFORMATION
  Report Type: Report from Study
  Country: US (occurrence: US)
  Receive Date: 20210818
  Receipt Date: 20210818
  Transmission Date: 20211014
  Serious: Yes (Hospitalization, Disabling, Other)
  Sender: FDA-Public Use
  Company Number: US-JNJFOC-A-NJ2018-171787

PATIENT
  Age: 70 Year
  Sex: Male
  Weight: 91.61 kg

DRUGS (9)
  1. ASPIRIN. [Concomitant]
     Active Substance: ASPIRIN
  2. OPSUMIT [Suspect]
     Active Substance: MACITENTAN
     Indication: PULMONARY ARTERIAL HYPERTENSION
     Dosage: 10 MG, QD
     Route: 048
     Dates: start: 20160527
  3. TRAZODONE [Concomitant]
     Active Substance: TRAZODONE HYDROCHLORIDE
  4. OPSUMIT [Suspect]
     Active Substance: MACITENTAN
     Route: 048
     Dates: start: 20210220
  5. GABAPENTIN. [Suspect]
     Active Substance: GABAPENTIN
     Indication: PRODUCT USED FOR UNKNOWN INDICATION
     Dosage: UNK
     Route: 065
  6. ADCIRCA [Concomitant]
     Active Substance: TADALAFIL
  7. PIPERACILLIN. [Concomitant]
     Active Substance: PIPERACILLIN SODIUM
     Indication: INFECTION PROPHYLAXIS
  8. TAZOBACTAM [Concomitant]
     Active Substance: TAZOBACTAM
     Indication: INFECTION PROPHYLAXIS
  9. LACTULOSE. [Concomitant]
     Active Substance: LACTULOSE

REACTIONS (25)
  - Hypoacusis [Unknown]
  - Acute kidney injury [Unknown]
  - Anxiety [Unknown]
  - Nausea [Unknown]
  - Ammonia increased [Unknown]
  - Somnolence [Unknown]
  - Fibromyalgia [Unknown]
  - Oxygen consumption increased [Unknown]
  - Hepatic cancer [Unknown]
  - Neoplasm progression [Unknown]
  - Vomiting [Unknown]
  - Dyspnoea [Unknown]
  - Insomnia [Unknown]
  - Polycythaemia [Unknown]
  - Pulmonary congestion [Unknown]
  - Renal cancer [Unknown]
  - Confusional state [Unknown]
  - Dizziness [Unknown]
  - Back pain [Unknown]
  - Fatigue [Unknown]
  - Condition aggravated [Unknown]
  - Fall [Unknown]
  - Memory impairment [Unknown]
  - Liver injury [Unknown]
  - Respiratory tract infection [Unknown]

NARRATIVE: CASE EVENT DATE: 202003
